FAERS Safety Report 25683789 (Version 1)
Quarter: 2025Q3

REPORT INFORMATION
  Report Type: Spontaneous
  Country: JP (occurrence: JP)
  Receive Date: 20250814
  Receipt Date: 20250814
  Transmission Date: 20251020
  Serious: Yes (Other)
  Sender: MERCK SHARP & DOHME LLC
  Company Number: JP-009507513-2317834

PATIENT
  Age: 64 Year
  Sex: Female

DRUGS (2)
  1. PEMBROLIZUMAB [Suspect]
     Active Substance: PEMBROLIZUMAB
     Indication: Endometrial cancer stage III
  2. LENVATINIB [Concomitant]
     Active Substance: LENVATINIB
     Indication: Endometrial cancer stage III

REACTIONS (3)
  - Ketoacidosis [Unknown]
  - Adrenal disorder [Unknown]
  - Thyroid disorder [Unknown]
